FAERS Safety Report 24266661 (Version 1)
Quarter: 2024Q3

REPORT INFORMATION
  Report Type: Spontaneous
  Country: US (occurrence: US)
  Receive Date: 20240830
  Receipt Date: 20240830
  Transmission Date: 20241016
  Serious: Yes (Hospitalization)
  Sender: GLAXOSMITHKLINE
  Company Number: US-GLAXOSMITHKLINE-US2024105457

PATIENT

DRUGS (3)
  1. BENLYSTA [Suspect]
     Active Substance: BELIMUMAB
     Indication: Systemic lupus erythematosus
     Dosage: UNK
  2. HYDROXYCHLOROQUINE [Concomitant]
     Active Substance: HYDROXYCHLOROQUINE
     Indication: Traumatic lung injury
     Dosage: 400 MG, QD
  3. OFEV [Concomitant]
     Active Substance: NINTEDANIB
     Indication: Traumatic lung injury
     Dosage: UNK

REACTIONS (2)
  - Hospitalisation [Unknown]
  - Red blood cell sedimentation rate increased [Not Recovered/Not Resolved]
